FAERS Safety Report 23092189 (Version 2)
Quarter: 2023Q4

REPORT INFORMATION
  Report Type: Spontaneous
  Country: US (occurrence: US)
  Receive Date: 20231021
  Receipt Date: 20231030
  Transmission Date: 20240110
  Serious: Yes (Hospitalization)
  Sender: FDA-Public Use
  Company Number: US-PROCTER_AND_GAMBLE-PH23009431

PATIENT
  Age: 44 Year
  Sex: Female

DRUGS (1)
  1. VICKS VAPORUB [Suspect]
     Active Substance: CAMPHOR (SYNTHETIC)\EUCALYPTUS OIL\MENTHOL
     Dosage: USED OVER THE YEARS PERSISTENTLY

REACTIONS (5)
  - Pneumonia lipoid [Unknown]
  - Pneumonitis [Unknown]
  - Pulmonary oedema [Unknown]
  - Breath sounds abnormal [Recovered/Resolved]
  - Dyspnoea [Unknown]
